FAERS Safety Report 5754458-6 (Version None)
Quarter: 2008Q2

REPORT INFORMATION
  Report Type: 
  Country: None (occurrence: None)
  Receive Date: 20080530
  Receipt Date: 20080526
  Transmission Date: 20081010
  Serious: Yes (Other)
  Sender: FDA-Public Use
  Company Number: DE-BOEHRINGER INGELHEIM GMBH, GERMANY-2008-DE-02459DE

PATIENT
  Sex: Male
  Weight: 75 kg

DRUGS (4)
  1. AGGRENOX [Suspect]
     Indication: TRANSIENT ISCHAEMIC ATTACK
     Route: 048
     Dates: start: 20071104, end: 20080307
  2. EUTHYROX [Concomitant]
     Indication: GOITRE
     Route: 048
  3. ISRADIPINE [Concomitant]
     Indication: HYPERTENSION
     Route: 048
  4. BELOC ZOK [Concomitant]
     Indication: HYPERTENSION
     Route: 048

REACTIONS (6)
  - ASTHENIA [None]
  - DYSPNOEA EXERTIONAL [None]
  - GASTRIC ULCER [None]
  - HYPERHIDROSIS [None]
  - HYPOCHROMIC ANAEMIA [None]
  - PERFORMANCE STATUS DECREASED [None]
